FAERS Safety Report 11746774 (Version 2)
Quarter: 2015Q4

REPORT INFORMATION
  Report Type: Report from Study
  Country: BR (occurrence: BR)
  Receive Date: 20151117
  Receipt Date: 20151203
  Transmission Date: 20160304
  Serious: No
  Sender: FDA-Public Use
  Company Number: PHHY2015BR149173

PATIENT
  Sex: Female
  Weight: 50 kg

DRUGS (3)
  1. DIOVAN HCT [Suspect]
     Active Substance: HYDROCHLOROTHIAZIDE\VALSARTAN
     Dosage: 0.5 DF, QD (160 MG VALSARTAN, 12.5 MG HYDROCHLOROTHIAZIDE)
     Route: 048
  2. DIOVAN [Concomitant]
     Active Substance: VALSARTAN
     Indication: HYPERTENSION
     Dosage: 1 DF, QD
     Route: 048
  3. DIOVAN HCT [Suspect]
     Active Substance: HYDROCHLOROTHIAZIDE\VALSARTAN
     Indication: HYPERTENSION
     Dosage: 1 DF, (160 MG VALSARTAN AND 5 MG HYDROCHLORTHIAZIDE)
     Route: 048

REACTIONS (1)
  - Wrong technique in product usage process [Unknown]
